FAERS Safety Report 13960428 (Version 1)
Quarter: 2017Q3

REPORT INFORMATION
  Report Type: Spontaneous
  Country: US (occurrence: US)
  Receive Date: 20170912
  Receipt Date: 20170912
  Transmission Date: 20171128
  Serious: No
  Sender: FDA-Public Use
  Company Number: US-ASTRAZENECA-2013BM01334

PATIENT
  Age: 63 Year
  Sex: Female

DRUGS (3)
  1. BYDUREON [Suspect]
     Active Substance: EXENATIDE
     Indication: DIABETES MELLITUS
     Route: 058
     Dates: start: 2012
  2. DIABETIC MEDS [Concomitant]
  3. BYETTA [Suspect]
     Active Substance: EXENATIDE
     Indication: TYPE 2 DIABETES MELLITUS
     Dosage: .25 MG/ML, DOSE UNKNOWN
     Route: 058
     Dates: end: 2012

REACTIONS (3)
  - Drug dose omission [Unknown]
  - Blood glucose increased [Recovering/Resolving]
  - Blood glucose abnormal [Recovering/Resolving]
